FAERS Safety Report 4702183-2 (Version None)
Quarter: 2005Q2

REPORT INFORMATION
  Report Type: 
  Country: None (occurrence: None)
  Receive Date: 20050629
  Receipt Date: 20050125
  Transmission Date: 20051028
  Serious: No
  Sender: FDA-Public Use
  Company Number: US-BRISTOL-MYERS SQUIBB COMPANY-12837662

PATIENT
  Age: 62 Year
  Sex: Female
  Weight: 59 kg

DRUGS (12)
  1. AMIKACIN SULFATE [Suspect]
     Indication: MYCOBACTERIUM CHELONEI INFECTION
     Route: 042
     Dates: start: 20041104, end: 20041221
  2. CEFOXITIN [Suspect]
     Indication: MYCOBACTERIUM CHELONEI INFECTION
     Dates: start: 20041104, end: 20041101
  3. BIAXIN [Concomitant]
  4. PRIMAXIN [Concomitant]
  5. CALCIUM GLUCONATE [Concomitant]
  6. NEXIUM [Concomitant]
  7. COMBIVENT [Concomitant]
  8. ESTROPIPATE [Concomitant]
  9. PROMETRIUM [Concomitant]
  10. DETROL LA [Concomitant]
  11. ADVAIR [Concomitant]
  12. CLARITIN [Concomitant]

REACTIONS (4)
  - CHILLS [None]
  - DERMATITIS ALLERGIC [None]
  - HEARING IMPAIRED [None]
  - PYREXIA [None]
